FAERS Safety Report 23439140 (Version 2)
Quarter: 2024Q1

REPORT INFORMATION
  Report Type: Spontaneous
  Country: US (occurrence: US)
  Receive Date: 20240124
  Receipt Date: 20240315
  Transmission Date: 20240409
  Serious: Yes (Other)
  Sender: FDA-Public Use
  Company Number: US-PFIZER INC-PV202400003410

PATIENT
  Age: 80 Year
  Sex: Male

DRUGS (2)
  1. RUXIENCE [Suspect]
     Active Substance: RITUXIMAB-PVVR
     Indication: Follicular lymphoma stage II
     Dosage: 375 MG/M2 IV D1;BENDEKA (BENDAMUSTI NE) 90 MG/M2 IV D1-2 Q 28D X 6 CYCLES NCCN V7.0
     Route: 042
     Dates: start: 20220914
  2. RUXIENCE [Suspect]
     Active Substance: RITUXIMAB-PVVR
     Indication: B-cell lymphoma stage III
     Dosage: 375 MG/M2, EVERY 2 MONTHS (8 WEEKS) X 6 CYCLES
     Route: 042
     Dates: start: 20230329

REACTIONS (4)
  - Agranulocytosis [Unknown]
  - Vomiting [Unknown]
  - Nausea [Unknown]
  - Pancreatic disorder [Unknown]
